FAERS Safety Report 8974947 (Version 2)
Quarter: 2013Q1

REPORT INFORMATION
  Report Type: Report from Study
  Country: US (occurrence: US)
  Receive Date: 20121219
  Receipt Date: 20130226
  Transmission Date: 20140127
  Serious: Yes (Hospitalization, Other)
  Sender: FDA-Public Use
  Company Number: US-ABBOTT-12P-163-1021447-00

PATIENT
  Age: 65 Year
  Sex: Female

DRUGS (10)
  1. HUMIRA [Suspect]
     Indication: RHEUMATOID ARTHRITIS
     Dates: start: 20120818
  2. LAMOTRIGINE [Concomitant]
     Indication: PRODUCT USED FOR UNKNOWN INDICATION
  3. LITHIUM [Concomitant]
     Indication: PRODUCT USED FOR UNKNOWN INDICATION
  4. ATORVASTATIN [Concomitant]
     Indication: PRODUCT USED FOR UNKNOWN INDICATION
  5. TEMAZEPAM [Concomitant]
     Indication: PRODUCT USED FOR UNKNOWN INDICATION
     Dates: end: 20130204
  6. METFORMIN [Concomitant]
     Indication: PRODUCT USED FOR UNKNOWN INDICATION
  7. VAGIFEM [Concomitant]
     Indication: PRODUCT USED FOR UNKNOWN INDICATION
  8. TYLENOL [Concomitant]
     Indication: PRODUCT USED FOR UNKNOWN INDICATION
     Dosage: 500 MG ONE TIME DAILY PRN
  9. AMBIEN [Concomitant]
     Indication: INSOMNIA
  10. HYDROXYZINE [Concomitant]
     Indication: INSOMNIA
     Dosage: NIGHTLY
     Dates: start: 20121203

REACTIONS (14)
  - Abdominal adhesions [Not Recovered/Not Resolved]
  - Small intestinal obstruction [Unknown]
  - Arthralgia [Not Recovered/Not Resolved]
  - Joint crepitation [Recovered/Resolved]
  - Gait disturbance [Unknown]
  - Insomnia [Unknown]
  - Drug ineffective [Unknown]
  - Impaired healing [Recovering/Resolving]
  - Wound [Recovering/Resolving]
  - Drug dose omission [Recovering/Resolving]
  - Arthralgia [Recovering/Resolving]
  - Arthralgia [Recovering/Resolving]
  - Drug ineffective [Recovering/Resolving]
  - Injection site erythema [Unknown]
